FAERS Safety Report 5249681-3 (Version None)
Quarter: 2007Q1

REPORT INFORMATION
  Report Type: 
  Country: None (occurrence: None)
  Receive Date: 20070228
  Receipt Date: 20061128
  Transmission Date: 20070707
  Serious: No
  Sender: FDA-Public Use
  Company Number: US-GLAXOSMITHKLINE-A0614181A

PATIENT
  Age: 43 Year
  Sex: Female

DRUGS (9)
  1. IMITREX [Suspect]
     Indication: MIGRAINE
     Dosage: 6MG AS REQUIRED
     Route: 058
     Dates: start: 19960901
  2. LEVORPHANOL TARTRATE [Concomitant]
  3. LEVOTHYROXINE SODIUM [Concomitant]
  4. XANAX [Concomitant]
  5. TOPAMAX [Concomitant]
  6. PROZAC [Concomitant]
  7. MIDRIN [Concomitant]
  8. FLAXSEED OIL [Concomitant]
  9. STOOL SOFTENERS [Concomitant]

REACTIONS (4)
  - INJECTION SITE ERYTHEMA [None]
  - INJECTION SITE PAIN [None]
  - INJECTION SITE PRURITUS [None]
  - URTICARIA [None]
